FAERS Safety Report 7956055-0 (Version None)
Quarter: 2011Q4

REPORT INFORMATION
  Report Type: 
  Country: None (occurrence: None)
  Receive Date: 20111205
  Receipt Date: 20111128
  Transmission Date: 20120403
  Serious: No
  Sender: FDA-Public Use
  Company Number: US-PFIZER INC-2011290893

PATIENT
  Age: 84 Year
  Sex: Female

DRUGS (4)
  1. NOVOLOG [Suspect]
     Dosage: UNK
  2. INSULIN DETEMIR [Suspect]
     Dosage: UNK
  3. METHYLPREDNISOLONE [Suspect]
     Dosage: UNK
  4. ALLEGRA [Suspect]
     Dosage: UNK

REACTIONS (1)
  - BLOOD GLUCOSE INCREASED [None]
